FAERS Safety Report 8484222-9 (Version None)
Quarter: 2012Q3

REPORT INFORMATION
  Report Type: 
  Country: None (occurrence: None)
  Receive Date: 20120703
  Receipt Date: 20120625
  Transmission Date: 20120928
  Serious: Yes (Hospitalization)
  Sender: FDA-Public Use
  Company Number: US-JNJFOC-20120612605

PATIENT
  Sex: Male

DRUGS (8)
  1. NAPROXEN [Concomitant]
     Route: 065
  2. ASPIRIN [Concomitant]
     Route: 065
  3. STELARA [Suspect]
     Indication: PSORIASIS
     Route: 058
  4. APAP TAB [Concomitant]
     Indication: PAIN
     Route: 065
  5. LOPRESSOR [Concomitant]
     Route: 065
  6. SIMVASTATIN [Concomitant]
     Dosage: QHS
     Route: 065
  7. PLAVIX [Concomitant]
     Route: 065
  8. LISINOPRIL [Concomitant]
     Route: 065

REACTIONS (2)
  - DRUG DOSE OMISSION [None]
  - MYOCARDIAL INFARCTION [None]
